FAERS Safety Report 7392636-3 (Version None)
Quarter: 2011Q2

REPORT INFORMATION
  Report Type: 
  Country: None (occurrence: None)
  Receive Date: 20110404
  Receipt Date: 20110325
  Transmission Date: 20111010
  Serious: Yes (Other)
  Sender: FDA-Public Use
  Company Number: US-PURDUE-USA-2011-0063581

PATIENT
  Age: 45 Year
  Sex: Female
  Weight: 68.027 kg

DRUGS (8)
  1. OXYCONTIN [Suspect]
     Indication: FIBROMYALGIA
  2. OXYCONTIN [Suspect]
     Indication: BACK PAIN
     Dosage: 10 MG, QID
  3. GABAPENTIN [Concomitant]
     Indication: PRODUCT USED FOR UNKNOWN INDICATION
     Dosage: 300 MG, TID
  4. BUSPIRONE HCL [Concomitant]
     Indication: PRODUCT USED FOR UNKNOWN INDICATION
     Dosage: 15 MG, HS
  5. OXYCONTIN [Suspect]
     Indication: ANKYLOSING SPONDYLITIS
  6. ALPRAZOLAM [Concomitant]
     Indication: PRODUCT USED FOR UNKNOWN INDICATION
     Dosage: .5 MG, PRN
  7. HUMIRA [Concomitant]
     Indication: PRODUCT USED FOR UNKNOWN INDICATION
     Dosage: UNK, BIW
     Route: 042
  8. ZOLPIDEM TARTRATE [Concomitant]
     Indication: PRODUCT USED FOR UNKNOWN INDICATION
     Dosage: 10 MG, HS

REACTIONS (11)
  - DYSPEPSIA [None]
  - SUICIDAL IDEATION [None]
  - APHAGIA [None]
  - BACK PAIN [None]
  - BOWEL MOVEMENT IRREGULARITY [None]
  - ABDOMINAL PAIN UPPER [None]
  - MEDICATION RESIDUE [None]
  - DISTURBANCE IN ATTENTION [None]
  - FIBROMYALGIA [None]
  - PAIN [None]
  - NAUSEA [None]
